FAERS Safety Report 9468987 (Version 4)
Quarter: 2014Q1

REPORT INFORMATION
  Report Type: Report from Study
  Country: DE (occurrence: DE)
  Receive Date: 20130821
  Receipt Date: 20140304
  Transmission Date: 20141002
  Serious: Yes (Hospitalization)
  Sender: FDA-Public Use
  Company Number: DE-UCBSA-095882

PATIENT
  Sex: Female
  Weight: 70 kg

DRUGS (14)
  1. RAMIPRIL [Concomitant]
     Indication: HYPERTENSION
     Route: 048
  2. L-THYROXINE [Concomitant]
     Indication: POST PROCEDURAL HYPOTHYROIDISM
     Route: 048
  3. DEKRISTOL [Concomitant]
     Dosage: 800 UNITS
  4. KALINOR [Concomitant]
  5. KOCHSALZ [Concomitant]
  6. PRETERX [Concomitant]
     Dosage: 2.5 MG/ 0.625 MG
  7. CERTOLIZUMAB PEGOL [Suspect]
     Indication: RHEUMATOID ARTHRITIS
     Dosage: 200 MG; NO OF DOSES RECEIVED: 24
     Route: 058
     Dates: start: 20120907, end: 20130426
  8. METEX [Suspect]
     Indication: RHEUMATOID ARTHRITIS
     Dosage: DOSE: 25 MG/WEEK
     Dates: start: 200905, end: 200905
  9. METEX [Suspect]
     Indication: RHEUMATOID ARTHRITIS
     Dosage: DOSE: 15 MG
     Dates: start: 200906, end: 2010
  10. METEX [Suspect]
     Indication: RHEUMATOID ARTHRITIS
     Route: 058
     Dates: start: 20100517
  11. CETRIZINE [Concomitant]
  12. DECORTIN [Concomitant]
     Indication: RHEUMATOID ARTHRITIS
     Route: 048
     Dates: start: 20070719
  13. DECORTIN [Concomitant]
     Indication: RHEUMATOID ARTHRITIS
  14. SIMVAHEXAL [Concomitant]
     Indication: HYPERLIPIDAEMIA
     Route: 048

REACTIONS (1)
  - Herpes zoster [Recovered/Resolved]
